FAERS Safety Report 17975632 (Version 1)
Quarter: 2020Q3

REPORT INFORMATION
  Report Type: Spontaneous
  Country: TR (occurrence: TR)
  Receive Date: 20200702
  Receipt Date: 20200702
  Transmission Date: 20201103
  Serious: Yes (Hospitalization)
  Sender: FDA-Public Use
  Company Number: TR-B.I. PHARMACEUTICALS,INC./RIDGEFIELD-2020-BI-032525

PATIENT
  Age: 4 Month
  Sex: Male

DRUGS (6)
  1. SALBUTAMOL [Suspect]
     Active Substance: ALBUTEROL
     Indication: METAPNEUMOVIRUS INFECTION
     Route: 065
  2. ATROVENT [Suspect]
     Active Substance: IPRATROPIUM BROMIDE
     Indication: INFLUENZA
  3. SALBUTAMOL [Suspect]
     Active Substance: ALBUTEROL
     Indication: INFLUENZA
  4. OSELTAMIVIR [Suspect]
     Active Substance: OSELTAMIVIR
     Indication: INFLUENZA
  5. OSELTAMIVIR [Suspect]
     Active Substance: OSELTAMIVIR
     Indication: METAPNEUMOVIRUS INFECTION
     Route: 065
  6. ATROVENT [Suspect]
     Active Substance: IPRATROPIUM BROMIDE
     Indication: METAPNEUMOVIRUS INFECTION
     Route: 065

REACTIONS (4)
  - Dysphonia [Recovered/Resolved]
  - Cough [Recovered/Resolved]
  - Restlessness [Recovered/Resolved]
  - Rales [Recovered/Resolved]
